FAERS Safety Report 8183959-9 (Version None)
Quarter: 2012Q1

REPORT INFORMATION
  Report Type: 
  Country: None (occurrence: None)
  Receive Date: 20120305
  Receipt Date: 20120227
  Transmission Date: 20120608
  Serious: Yes (Other)
  Sender: FDA-Public Use
  Company Number: US-ROCHE-1020267

PATIENT
  Sex: Female
  Weight: 54.48 kg

DRUGS (3)
  1. ACCUTANE [Suspect]
     Indication: ACNE
     Dates: start: 19820101
  2. ACCUTANE [Suspect]
     Dates: start: 19980101
  3. ACCUTANE [Suspect]
     Dates: start: 19970101

REACTIONS (7)
  - RECTAL FISSURE [None]
  - COLITIS ULCERATIVE [None]
  - ANAL POLYP [None]
  - INFLAMMATORY BOWEL DISEASE [None]
  - DEPRESSION [None]
  - ACNE [None]
  - IRRITABLE BOWEL SYNDROME [None]
